FAERS Safety Report 5109803-1 (Version None)
Quarter: 2006Q3

REPORT INFORMATION
  Report Type: 
  Country: None (occurrence: None)
  Receive Date: 20060915
  Receipt Date: 20060907
  Transmission Date: 20061208
  Serious: Yes (Hospitalization)
  Sender: FDA-Public Use
  Company Number: ITWYE871007SEP06

PATIENT
  Age: 46 Year
  Sex: Female

DRUGS (3)
  1. PIPERACILLIN AND TAZOBACTAM [Suspect]
     Indication: PROPHYLAXIS
     Dosage: 4.5 G 3X PER 1 DAY INTRAVENOUS
     Route: 042
     Dates: start: 20060822, end: 20060824
  2. CIPROXIN (CIPROFLOXACIN, , 0) [Suspect]
     Dosage: INTRAVENOUS
     Route: 042
     Dates: start: 20060819, end: 20060824
  3. TARGOSID (TEICOPLANIN, , 0) [Suspect]
     Indication: PROPHYLAXIS
     Dosage: 400 MG 2X PER 1 DAY INTRAVENOUS
     Route: 042
     Dates: start: 20060819, end: 20060824

REACTIONS (6)
  - HEPATIC FAILURE [None]
  - MELAENA [None]
  - RASH SCARLATINIFORM [None]
  - SKIN EXFOLIATION [None]
  - SOPOR [None]
  - STAPHYLOCOCCAL INFECTION [None]
